FAERS Safety Report 20007384 (Version 1)
Quarter: 2021Q4

REPORT INFORMATION
  Report Type: Report from Study
  Country: US (occurrence: US)
  Receive Date: 20211028
  Receipt Date: 20211028
  Transmission Date: 20220303
  Serious: Yes (Hospitalization, Other)
  Sender: FDA-Public Use
  Company Number: 2021A731869

PATIENT
  Age: 868 Month
  Sex: Female

DRUGS (1)
  1. TAGRISSO [Suspect]
     Active Substance: OSIMERTINIB
     Indication: Lung neoplasm malignant
     Route: 048
     Dates: start: 20210508

REACTIONS (2)
  - Pulmonary oedema [Unknown]
  - Thrombosis [Unknown]

NARRATIVE: CASE EVENT DATE: 20210701
